FAERS Safety Report 17591347 (Version 1)
Quarter: 2020Q1

REPORT INFORMATION
  Report Type: Spontaneous
  Country: DE (occurrence: DE)
  Receive Date: 20200327
  Receipt Date: 20200327
  Transmission Date: 20200409
  Serious: Yes (Other)
  Sender: FDA-Public Use
  Company Number: DE-PFIZER INC-2020128566

PATIENT
  Sex: Female

DRUGS (2)
  1. VENETOCLAX. [Suspect]
     Active Substance: VENETOCLAX
     Indication: ACUTE MYELOID LEUKAEMIA
     Dosage: 400 MG, UNK
     Route: 048
  2. FLUCONAZOLE. [Suspect]
     Active Substance: FLUCONAZOLE
     Dosage: UNK

REACTIONS (2)
  - Drug ineffective [Unknown]
  - Pneumonia [Unknown]
